FAERS Safety Report 6308948-8 (Version None)
Quarter: 2009Q3

REPORT INFORMATION
  Report Type: 
  Country: None (occurrence: None)
  Receive Date: 20090813
  Receipt Date: 20090617
  Transmission Date: 20100115
  Serious: No
  Sender: FDA-Public Use
  Company Number: US-ALLERGAN-0907984US

PATIENT
  Sex: Male

DRUGS (2)
  1. COMBIGAN [Suspect]
     Indication: DRUG USE FOR UNKNOWN INDICATION
  2. LEVAQUIN [Suspect]

REACTIONS (3)
  - DRUG INTERACTION [None]
  - EYE INFECTION [None]
  - OCULAR HYPERAEMIA [None]
